FAERS Safety Report 25951373 (Version 1)
Quarter: 2025Q4

REPORT INFORMATION
  Report Type: Spontaneous
  Country: JP (occurrence: JP)
  Receive Date: 20251023
  Receipt Date: 20251023
  Transmission Date: 20260117
  Serious: Yes (Hospitalization)
  Sender: ACERTIS PHARMACEUTICALS
  Company Number: JP-ACERTIS PHARMACEUTICALS, LLC-2025ACR00021

PATIENT
  Age: 48 Year
  Sex: Female

DRUGS (2)
  1. PROGESTERONE [Suspect]
     Active Substance: PROGESTERONE
     Indication: Turner^s syndrome
     Dosage: UNK
  2. ESTROGENS [Suspect]
     Active Substance: ESTROGENS
     Indication: Turner^s syndrome
     Dosage: UNK

REACTIONS (1)
  - Lung opacity [Recovering/Resolving]
